FAERS Safety Report 13158751 (Version 1)
Quarter: 2017Q1

REPORT INFORMATION
  Report Type: Spontaneous
  Country: IT (occurrence: IT)
  Receive Date: 20170127
  Receipt Date: 20170127
  Transmission Date: 20170428
  Serious: Yes (Other)
  Sender: FDA-Public Use
  Company Number: IT-HQ SPECIALTY-IT-2017INT000018

PATIENT
  Sex: Male

DRUGS (6)
  1. CISPLATIN. [Suspect]
     Active Substance: CISPLATIN
     Dosage: 75 MG/M2, OVER 2 HOURS ON DAY 1, EVERY 21 DAYS (UP TO 4 CYCLES)
     Route: 042
     Dates: start: 200701
  2. PACLITAXEL. [Suspect]
     Active Substance: PACLITAXEL
     Indication: PENILE SQUAMOUS CELL CARCINOMA
     Dosage: 120 MG/M2, OVER 1 HOUR ON DAY 1, EVERY 21 DAYS ( (UP TO 4 CYCLES)
     Route: 042
     Dates: end: 200701
  3. 5-FLUOROURACIL                     /00098801/ [Suspect]
     Active Substance: FLUOROURACIL
     Dosage: 750 MG/M2/D CONTINUOUSLY OVER 96 HOURS, EVERY 21 DAYS (UP TO 4 CYCLES)
     Route: 042
     Dates: start: 200701
  4. DOCETAXEL. [Suspect]
     Active Substance: DOCETAXEL
     Indication: PENILE SQUAMOUS CELL CARCINOMA
     Dosage: 75 MG/M2, UNK
     Route: 042
     Dates: start: 200701
  5. 5-FLUOROURACIL                     /00098801/ [Suspect]
     Active Substance: FLUOROURACIL
     Indication: PENILE SQUAMOUS CELL CARCINOMA
     Dosage: 1000 MG/M2/D CONTINUOUSLY OVER 96 HOURS, EVERY 21 DAYS (UP TO 4 CYCLES)
     Route: 042
     Dates: end: 200701
  6. CISPLATIN. [Suspect]
     Active Substance: CISPLATIN
     Indication: PENILE SQUAMOUS CELL CARCINOMA
     Dosage: 100 MG/M2, OVER 2 HOURS ON DAY 1, EVERY 21 DAYS (UP TO 4 CYCLES)
     Route: 042
     Dates: end: 200701

REACTIONS (1)
  - Cardiotoxicity [Unknown]
